FAERS Safety Report 4489269-5 (Version None)
Quarter: 2004Q4

REPORT INFORMATION
  Report Type: 
  Country: None (occurrence: None)
  Receive Date: 20041029
  Receipt Date: 20041021
  Transmission Date: 20050328
  Serious: Yes (Hospitalization)
  Sender: FDA-Public Use
  Company Number: GB-AMGEN-UK096472

PATIENT
  Sex: Female
  Weight: 77 kg

DRUGS (8)
  1. KINERET [Suspect]
     Indication: RHEUMATOID ARTHRITIS
     Route: 065
     Dates: start: 20040308
  2. PARACETAMOL [Concomitant]
  3. THYROXINE [Concomitant]
  4. ATENOLOL [Concomitant]
  5. ROFECOXIB [Concomitant]
  6. ZOPICLONE [Concomitant]
  7. METHOTREXATE [Concomitant]
  8. FOLIC ACID [Concomitant]

REACTIONS (4)
  - BLOOD PRESSURE INCREASED [None]
  - LYMPHADENOPATHY [None]
  - MOUTH ULCERATION [None]
  - PHARYNGOLARYNGEAL PAIN [None]
